FAERS Safety Report 7700660-3 (Version None)
Quarter: 2011Q3

REPORT INFORMATION
  Report Type: 
  Country: None (occurrence: None)
  Receive Date: 20110822
  Receipt Date: 20110822
  Transmission Date: 20111222
  Serious: No
  Sender: FDA-Public Use
  Company Number: None

PATIENT
  Age: 70 Year
  Sex: Female
  Weight: 52.163 kg

DRUGS (1)
  1. PAROXETINE HCL [Suspect]
     Indication: DRUG DISPENSING ERROR
     Dosage: 40MG
     Route: 048
     Dates: start: 20110820, end: 20110821

REACTIONS (1)
  - DRUG DISPENSING ERROR [None]
